FAERS Safety Report 14417353 (Version 1)
Quarter: 2018Q1

REPORT INFORMATION
  Report Type: Spontaneous
  Country: US (occurrence: US)
  Receive Date: 20180122
  Receipt Date: 20180122
  Transmission Date: 20180509
  Serious: No
  Sender: FDA-Public Use
  Company Number: US-ALLERGAN-1727726US

PATIENT

DRUGS (1)
  1. PREDNISOLONE ACETATE, 1.0% [Suspect]
     Active Substance: PREDNISOLONE ACETATE
     Indication: CORNEAL OEDEMA
     Route: 047

REACTIONS (4)
  - Vision blurred [Unknown]
  - Post procedural inflammation [Unknown]
  - Macular oedema [Unknown]
  - Iritis [Unknown]
